FAERS Safety Report 8203780-2 (Version None)
Quarter: 2012Q1

REPORT INFORMATION
  Report Type: 
  Country: None (occurrence: None)
  Receive Date: 20120308
  Receipt Date: 20120227
  Transmission Date: 20120608
  Serious: Yes (Hospitalization, Other)
  Sender: FDA-Public Use
  Company Number: 2010SP026331

PATIENT
  Age: 31 Year
  Sex: Female
  Weight: 82.5547 kg

DRUGS (2)
  1. NUVARING [Suspect]
     Indication: CONTRACEPTION
     Dates: start: 20070531, end: 20080901
  2. SEROQUEL [Suspect]
     Indication: ANXIETY
     Dates: start: 20080101, end: 20080101

REACTIONS (36)
  - HUMAN PAPILLOMA VIRUS TEST POSITIVE [None]
  - TREMOR [None]
  - CALCULUS URETERIC [None]
  - CONTUSION [None]
  - NASAL SEPTUM DEVIATION [None]
  - LIGAMENT SPRAIN [None]
  - SMEAR CERVIX ABNORMAL [None]
  - MULTIPLE ALLERGIES [None]
  - DYSPEPSIA [None]
  - ROAD TRAFFIC ACCIDENT [None]
  - PULMONARY EMBOLISM [None]
  - GASTROOESOPHAGEAL REFLUX DISEASE [None]
  - SINUS TACHYCARDIA [None]
  - HEADACHE [None]
  - WEIGHT INCREASED [None]
  - NEPHROLITHIASIS [None]
  - UPPER RESPIRATORY TRACT INFECTION [None]
  - CERVICAL DYSPLASIA [None]
  - DEEP VEIN THROMBOSIS [None]
  - GLUCOSE TOLERANCE IMPAIRED [None]
  - ANTIBIOTIC RESISTANT STAPHYLOCOCCUS TEST POSITIVE [None]
  - ARTHRALGIA [None]
  - PULMONARY INFARCTION [None]
  - C-REACTIVE PROTEIN INCREASED [None]
  - BIPOLAR DISORDER [None]
  - AFFECTIVE DISORDER [None]
  - ANTIPHOSPHOLIPID ANTIBODIES POSITIVE [None]
  - CULTURE POSITIVE [None]
  - BLOOD GLUCOSE INCREASED [None]
  - HYDRONEPHROSIS [None]
  - PREGNANCY [None]
  - MULTIPLE INJURIES [None]
  - SINUS DISORDER [None]
  - MALAISE [None]
  - JOINT SWELLING [None]
  - PHYSICAL ABUSE [None]
